FAERS Safety Report 7780858-9 (Version None)
Quarter: 2011Q3

REPORT INFORMATION
  Report Type: 
  Country: None (occurrence: None)
  Receive Date: 20110927
  Receipt Date: 20110923
  Transmission Date: 20111222
  Serious: No
  Sender: FDA-Public Use
  Company Number: US-PFIZER INC-2011228432

PATIENT
  Sex: Female
  Weight: 37.64 kg

DRUGS (3)
  1. BENICAR [Concomitant]
     Indication: CARDIAC DISORDER
     Dosage: 20 MG, DAILY
  2. LIPITOR [Suspect]
     Indication: BLOOD CHOLESTEROL ABNORMAL
     Dosage: 80 MG, DAILY
     Dates: start: 20090101
  3. TOPROL-XL [Concomitant]
     Indication: CARDIAC DISORDER
     Dosage: 50MG, UNK

REACTIONS (1)
  - POOR QUALITY SLEEP [None]
